FAERS Safety Report 17313312 (Version 1)
Quarter: 2020Q1

REPORT INFORMATION
  Report Type: Spontaneous
  Country: US (occurrence: US)
  Receive Date: 20200107
  Receipt Date: 20200107
  Transmission Date: 20200409
  Serious: No
  Sender: FDA-Public Use
  Company Number: None

PATIENT
  Age: 51 Year
  Sex: Male

DRUGS (1)
  1. INLYTA [Suspect]
     Active Substance: AXITINIB
     Route: 048
     Dates: start: 201809

REACTIONS (3)
  - Oropharyngeal pain [None]
  - Decreased appetite [None]
  - Constipation [None]

NARRATIVE: CASE EVENT DATE: 20200107
